FAERS Safety Report 4633146-3 (Version None)
Quarter: 2005Q2

REPORT INFORMATION
  Report Type: 
  Country: None (occurrence: None)
  Receive Date: 20050411
  Receipt Date: 20050411
  Transmission Date: 20051028
  Serious: Yes (Hospitalization, Other)
  Sender: FDA-Public Use
  Company Number: None

PATIENT
  Age: 38 Year
  Sex: Male
  Weight: 86.1834 kg

DRUGS (1)
  1. PREDNISONE [Suspect]
     Indication: LICHEN PLANUS
     Dosage: 30 MG 1X PER DAY ORAL
     Route: 048

REACTIONS (6)
  - CHEST PAIN [None]
  - CONDITION AGGRAVATED [None]
  - DIZZINESS [None]
  - DYSPNOEA [None]
  - LICHEN PLANUS [None]
  - MENTAL DISORDER [None]
